FAERS Safety Report 6047006-7 (Version None)
Quarter: 2009Q1

REPORT INFORMATION
  Report Type: 
  Country: None (occurrence: None)
  Receive Date: 20090122
  Receipt Date: 20090113
  Transmission Date: 20090719
  Serious: Yes (Disabling)
  Sender: FDA-Public Use
  Company Number: US-MERCK-0901USA01693

PATIENT

DRUGS (1)
  1. VYTORIN [Suspect]
     Route: 048
     Dates: start: 20080101

REACTIONS (9)
  - ABASIA [None]
  - ADVERSE EVENT [None]
  - ANOREXIA [None]
  - ASTHENIA [None]
  - BEDRIDDEN [None]
  - DYSARTHRIA [None]
  - FEEDING DISORDER [None]
  - MUSCLE ATROPHY [None]
  - MUSCULAR WEAKNESS [None]
